FAERS Safety Report 12520666 (Version 1)
Quarter: 2016Q2

REPORT INFORMATION
  Report Type: Spontaneous
  Country: US (occurrence: None)
  Receive Date: 20160630
  Receipt Date: 20160630
  Transmission Date: 20160815
  Serious: No
  Sender: FDA-Public Use
  Company Number: None

PATIENT
  Age: 63 Year
  Sex: Female

DRUGS (1)
  1. ORENCIA [Suspect]
     Active Substance: ABATACEPT
     Indication: RHEUMATOID ARTHRITIS
     Route: 058
     Dates: start: 20160429

REACTIONS (4)
  - Brain stem thrombosis [None]
  - Blood pressure increased [None]
  - Paralysis [None]
  - Blood cholesterol increased [None]

NARRATIVE: CASE EVENT DATE: 20160619
